APPROVED DRUG PRODUCT: GLOFIL-125
Active Ingredient: IOTHALAMATE SODIUM I-125
Strength: 250-300uCi/ML
Dosage Form/Route: INJECTABLE;INJECTION
Application: N017279 | Product #001
Applicant: ISOTEX DIAGNOSTICS
Approved: Approved Prior to Jan 1, 1982 | RLD: No | RS: No | Type: RX